FAERS Safety Report 5363550-X (Version None)
Quarter: 2007Q2

REPORT INFORMATION
  Report Type: 
  Country: None (occurrence: None)
  Receive Date: 20070618
  Receipt Date: 20070602
  Transmission Date: 20071010
  Serious: Yes (Hospitalization)
  Sender: FDA-Public Use
  Company Number: 157310ISR

PATIENT
  Sex: Male

DRUGS (4)
  1. AZILECT [Suspect]
     Indication: PARKINSON'S DISEASE
     Dosage: 1 MG (1 MG, 1 IN 1 D), ORAL
     Route: 048
     Dates: start: 20060601, end: 20060801
  2. PERGOLIDE MESYLATE [Concomitant]
  3. SINEMET [Concomitant]
  4. CORTISONE ACETATE [Concomitant]

REACTIONS (3)
  - BURNING SENSATION [None]
  - PYREXIA [None]
  - RESPIRATORY FAILURE [None]
